FAERS Safety Report 6564638-8 (Version None)
Quarter: 2010Q1

REPORT INFORMATION
  Report Type: 
  Country: None (occurrence: None)
  Receive Date: 20100201
  Receipt Date: 20100128
  Transmission Date: 20100710
  Serious: Yes (Death)
  Sender: FDA-Public Use
  Company Number: PHEH2009US13266

PATIENT
  Sex: Female
  Weight: 43 kg

DRUGS (13)
  1. RECLAST [Suspect]
     Indication: OSTEOPOROSIS
     Dosage: 5 MG, ONCE/SINGLE
     Route: 042
     Dates: start: 20080715, end: 20080715
  2. METOPROLOL [Concomitant]
     Dosage: 25 MG, UNK
     Route: 048
  3. MIRTAZAPINE [Concomitant]
     Dosage: 30 MG, BID
     Route: 048
  4. LEXAPRO [Concomitant]
     Dosage: 10 MG, UNK
  5. TIMOLOL MALEATE [Concomitant]
  6. XALATAN [Concomitant]
  7. CALCIUM WITH VITAMIN D [Concomitant]
  8. HYDROCODONE BITARTRATE AND ACETAMINOPHEN [Concomitant]
     Dosage: 7.5/500 MG
  9. ARICEPT [Concomitant]
     Dosage: 5 MG, UNK
  10. LEVOTHYROXINE SODIUM [Concomitant]
     Dosage: 0.1 MG, UNK
  11. LASIX [Concomitant]
     Dosage: 20 MG, PRN
  12. LUMIGAN [Concomitant]
  13. COMBIGAN [Concomitant]

REACTIONS (1)
  - MALIGNANT NEOPLASM PROGRESSION [None]
